FAERS Safety Report 19383873 (Version 1)
Quarter: 2021Q2

REPORT INFORMATION
  Report Type: Report from Study
  Country: US (occurrence: US)
  Receive Date: 20210607
  Receipt Date: 20210607
  Transmission Date: 20210717
  Serious: No
  Sender: FDA-Public Use
  Company Number: NVSC2021US120417

PATIENT
  Age: 48 Year
  Sex: Female

DRUGS (1)
  1. ENTRESTO [Suspect]
     Active Substance: SACUBITRIL\VALSARTAN
     Indication: CARDIAC FAILURE
     Dosage: 50 MG, BID (24/26 MG) (1/2 TABLET TWICE A DAY)
     Route: 048
     Dates: start: 20210409

REACTIONS (3)
  - Hypotension [Unknown]
  - Wrong technique in product usage process [Unknown]
  - Dyspnoea [Unknown]

NARRATIVE: CASE EVENT DATE: 202105
